FAERS Safety Report 23277941 (Version 1)
Quarter: 2023Q4

REPORT INFORMATION
  Report Type: Spontaneous
  Country: US (occurrence: US)
  Receive Date: 20231208
  Receipt Date: 20231208
  Transmission Date: 20240109
  Serious: No
  Sender: FDA-Public Use
  Company Number: US-BIOVITRUM-2023-US-019692

PATIENT
  Age: 12 Month
  Sex: Male
  Weight: 8.7 kg

DRUGS (1)
  1. SYNAGIS [Suspect]
     Active Substance: PALIVIZUMAB
     Indication: Premature baby
     Dosage: INTO THE MUSCLE ONCE A MONTH
     Dates: start: 20231114

REACTIONS (1)
  - Human rhinovirus test positive [Unknown]

NARRATIVE: CASE EVENT DATE: 20231126
